FAERS Safety Report 13536867 (Version 22)
Quarter: 2019Q2

REPORT INFORMATION
  Report Type: Spontaneous
  Country: CA (occurrence: CA)
  Receive Date: 20170511
  Receipt Date: 20190611
  Transmission Date: 20190711
  Serious: Yes (Other)
  Sender: FDA-Public Use
  Company Number: CA-ORION CORPORATION ORION PHARMA-TREX2017-1374

PATIENT
  Age: 44 Year
  Sex: Female
  Weight: 63 kg

DRUGS (91)
  1. AMITRIPTYLINE HYDROCHLORIDE. [Suspect]
     Active Substance: AMITRIPTYLINE HYDROCHLORIDE
     Indication: PRODUCT USED FOR UNKNOWN INDICATION
     Route: 048
     Dates: start: 2011
  2. IMURAN [Suspect]
     Active Substance: AZATHIOPRINE
     Indication: PRODUCT USED FOR UNKNOWN INDICATION
     Route: 065
  3. LYRICA [Suspect]
     Active Substance: PREGABALIN
     Indication: RHEUMATOID ARTHRITIS
     Route: 048
  4. RANITIDINE. [Suspect]
     Active Substance: RANITIDINE
     Route: 065
  5. SEPTRA [Suspect]
     Active Substance: SULFAMETHOXAZOLE\TRIMETHOPRIM
     Indication: PRODUCT USED FOR UNKNOWN INDICATION
     Route: 065
  6. SULFASALAZINE. [Suspect]
     Active Substance: SULFASALAZINE
     Indication: RHEUMATOID ARTHRITIS
     Route: 048
  7. XELJANZ [Suspect]
     Active Substance: TOFACITINIB CITRATE
     Route: 048
  8. XELJANZ [Suspect]
     Active Substance: TOFACITINIB CITRATE
     Route: 048
  9. APO-ALENDRONATE [Suspect]
     Active Substance: ALENDRONATE SODIUM
     Indication: PRODUCT USED FOR UNKNOWN INDICATION
     Route: 065
  10. APO-NAPROXEN [Suspect]
     Active Substance: NAPROXEN
     Indication: PRODUCT USED FOR UNKNOWN INDICATION
     Route: 048
  11. APO-RANITIDINE [Suspect]
     Active Substance: RANITIDINE
     Route: 048
     Dates: start: 2012
  12. ACETAMINOPHEN W/OXYCODONE [Suspect]
     Active Substance: ACETAMINOPHEN\OXYCODONE HYDROCHLORIDE
     Indication: PRODUCT USED FOR UNKNOWN INDICATION
     Route: 065
  13. SULFAMETHOXAZOLE W/TRIMETHOPRIM [Suspect]
     Active Substance: SULFAMETHOXAZOLE\TRIMETHOPRIM
     Indication: PRODUCT USED FOR UNKNOWN INDICATION
     Route: 065
  14. ALENDRONATE [Suspect]
     Active Substance: ALENDRONATE SODIUM
     Indication: PRODUCT USED FOR UNKNOWN INDICATION
     Route: 065
  15. ADALIMUMAB [Suspect]
     Active Substance: ADALIMUMAB
     Indication: PRODUCT USED FOR UNKNOWN INDICATION
     Route: 058
  16. METHOTREXATE (TRADE NAME UNKNOWN) [Suspect]
     Active Substance: METHOTREXATE
     Indication: RHEUMATOID ARTHRITIS
     Route: 048
  17. PANTOLOC [Suspect]
     Active Substance: PANTOPRAZOLE SODIUM
     Indication: PRODUCT USED FOR UNKNOWN INDICATION
     Route: 048
  18. HUMIRA [Suspect]
     Active Substance: ADALIMUMAB
     Route: 058
  19. NAPROXEN. [Suspect]
     Active Substance: NAPROXEN
     Route: 048
  20. NAPROXEN. [Suspect]
     Active Substance: NAPROXEN
     Route: 065
  21. SULFASALAZINE. [Suspect]
     Active Substance: SULFASALAZINE
     Route: 048
  22. APO-NAPROXEN [Suspect]
     Active Substance: NAPROXEN
     Route: 048
  23. APO-PREDNISONE [Suspect]
     Active Substance: PREDNISONE
     Route: 065
  24. ACETAMINOPHEN. [Suspect]
     Active Substance: ACETAMINOPHEN
     Route: 065
  25. FOLIC ACID. [Concomitant]
     Active Substance: FOLIC ACID
     Route: 065
  26. PANTOLOC [Suspect]
     Active Substance: PANTOPRAZOLE SODIUM
     Route: 065
  27. ALENDRONIC ACID [Suspect]
     Active Substance: ALENDRONIC ACID
     Route: 065
  28. ENBREL [Suspect]
     Active Substance: ETANERCEPT
     Route: 058
     Dates: end: 201807
  29. ENBREL [Suspect]
     Active Substance: ETANERCEPT
     Route: 058
  30. IMURAN [Suspect]
     Active Substance: AZATHIOPRINE
     Route: 065
  31. LYRICA [Suspect]
     Active Substance: PREGABALIN
     Route: 048
  32. XELJANZ [Suspect]
     Active Substance: TOFACITINIB CITRATE
     Route: 048
     Dates: start: 20140927
  33. APO-NAPROXEN [Suspect]
     Active Substance: NAPROXEN
     Route: 048
  34. RATIO-OXYCOCET [Suspect]
     Active Substance: ACETAMINOPHEN\OXYCODONE HYDROCHLORIDE
     Indication: PRODUCT USED FOR UNKNOWN INDICATION
     Route: 065
  35. OXYCODONE HYDROCHLORIDE. [Suspect]
     Active Substance: OXYCODONE HYDROCHLORIDE
     Indication: PRODUCT USED FOR UNKNOWN INDICATION
     Route: 065
  36. HYDROXYCHLOROQUINE PHOSPHATE [Concomitant]
     Active Substance: HYDROXYCHLOROQUINE DIPHOSPHATE
     Route: 065
  37. METHOTREXATE (TRADE NAME UNKNOWN) [Suspect]
     Active Substance: METHOTREXATE
     Route: 058
     Dates: start: 2008
  38. DEPO-MEDROL [Suspect]
     Active Substance: METHYLPREDNISOLONE ACETATE
     Indication: RHEUMATOID ARTHRITIS
     Route: 014
  39. ENBREL [Suspect]
     Active Substance: ETANERCEPT
     Route: 058
  40. HUMIRA [Suspect]
     Active Substance: ADALIMUMAB
     Indication: DRUG THERAPY
     Route: 058
     Dates: start: 201008, end: 201312
  41. NAPROXEN. [Suspect]
     Active Substance: NAPROXEN
     Route: 048
  42. PREDNISONE. [Suspect]
     Active Substance: PREDNISONE
     Route: 065
  43. VIMOVO [Suspect]
     Active Substance: ESOMEPRAZOLE MAGNESIUM\NAPROXEN
     Indication: PRODUCT USED FOR UNKNOWN INDICATION
     Route: 065
  44. XELJANZ [Suspect]
     Active Substance: TOFACITINIB CITRATE
     Route: 048
  45. TOFACITINIB [Suspect]
     Active Substance: TOFACITINIB
     Route: 048
     Dates: end: 20140927
  46. APO-RANITIDINE [Suspect]
     Active Substance: RANITIDINE
     Route: 065
  47. APO-RANITIDINE [Suspect]
     Active Substance: RANITIDINE
     Route: 048
  48. AZATHIOPRINE. [Suspect]
     Active Substance: AZATHIOPRINE
     Route: 065
  49. METHYLPREDNISOLONE ACETATE. [Suspect]
     Active Substance: METHYLPREDNISOLONE ACETATE
     Indication: PRODUCT USED FOR UNKNOWN INDICATION
     Route: 065
  50. HYDROXYCHLOROQUINE SULFATE. [Concomitant]
     Active Substance: HYDROXYCHLOROQUINE SULFATE
     Route: 065
  51. ALENDRONIC ACID [Suspect]
     Active Substance: ALENDRONIC ACID
     Indication: PRODUCT USED FOR UNKNOWN INDICATION
     Route: 048
  52. ENBREL [Suspect]
     Active Substance: ETANERCEPT
     Indication: RHEUMATOID ARTHRITIS
     Route: 058
     Dates: start: 200812, end: 201807
  53. MOBICOX [Suspect]
     Active Substance: MELOXICAM
     Indication: PRODUCT USED FOR UNKNOWN INDICATION
     Route: 065
  54. NAPROXEN. [Suspect]
     Active Substance: NAPROXEN
     Route: 048
  55. PREDNISONE. [Suspect]
     Active Substance: PREDNISONE
     Indication: RHEUMATOID ARTHRITIS
     Route: 065
  56. OXYCOCET [Suspect]
     Active Substance: ACETAMINOPHEN\OXYCODONE HYDROCHLORIDE
     Route: 048
  57. XELJANZ [Suspect]
     Active Substance: TOFACITINIB CITRATE
     Route: 048
  58. BACTRIM [Suspect]
     Active Substance: SULFAMETHOXAZOLE\TRIMETHOPRIM
     Indication: PRODUCT USED FOR UNKNOWN INDICATION
     Route: 065
  59. APO-NAPROXEN [Suspect]
     Active Substance: NAPROXEN
     Route: 048
  60. APO-RANITIDINE [Suspect]
     Active Substance: RANITIDINE
     Indication: PRODUCT USED FOR UNKNOWN INDICATION
     Route: 048
  61. AMITRIPTYLINE [Suspect]
     Active Substance: AMITRIPTYLINE
     Indication: PRODUCT USED FOR UNKNOWN INDICATION
     Route: 048
  62. CELEBREX [Concomitant]
     Active Substance: CELECOXIB
     Route: 065
  63. PREDNISONE. [Suspect]
     Active Substance: PREDNISONE
     Route: 048
  64. RANITIDINE. [Suspect]
     Active Substance: RANITIDINE
     Route: 065
  65. XELJANZ [Suspect]
     Active Substance: TOFACITINIB CITRATE
     Indication: RHEUMATOID ARTHRITIS
     Route: 048
     Dates: end: 20140927
  66. ESOMEPRAZOLE W/NAPROXEN [Suspect]
     Active Substance: ESOMEPRAZOLE MAGNESIUM\NAPROXEN
     Indication: PRODUCT USED FOR UNKNOWN INDICATION
     Route: 065
  67. PANTOPRAZOLE [Suspect]
     Active Substance: PANTOPRAZOLE
     Indication: PRODUCT USED FOR UNKNOWN INDICATION
     Route: 048
  68. PREGABALIN. [Suspect]
     Active Substance: PREGABALIN
     Indication: PRODUCT USED FOR UNKNOWN INDICATION
     Route: 048
  69. METHOTREXATE (TRADE NAME UNKNOWN) [Suspect]
     Active Substance: METHOTREXATE
     Route: 058
     Dates: start: 2008
  70. MOBICOX [Suspect]
     Active Substance: MELOXICAM
     Route: 065
  71. MOBICOX [Suspect]
     Active Substance: MELOXICAM
     Route: 065
  72. NAPROXEN. [Suspect]
     Active Substance: NAPROXEN
     Route: 048
  73. OXYCOCET [Suspect]
     Active Substance: ACETAMINOPHEN\OXYCODONE HYDROCHLORIDE
     Indication: PRODUCT USED FOR UNKNOWN INDICATION
     Route: 065
  74. XELJANZ [Suspect]
     Active Substance: TOFACITINIB CITRATE
     Route: 048
  75. XELJANZ [Suspect]
     Active Substance: TOFACITINIB CITRATE
     Route: 048
  76. APO-MELOXICAM [Suspect]
     Active Substance: MELOXICAM
     Indication: PRODUCT USED FOR UNKNOWN INDICATION
     Route: 065
  77. APO-PREDNISONE [Suspect]
     Active Substance: PREDNISONE
     Route: 065
  78. AMITRIPTYLINE PAMOATE [Suspect]
     Active Substance: AMITRIPTYLINE PAMOATE
     Indication: PRODUCT USED FOR UNKNOWN INDICATION
     Route: 048
  79. METHYLPREDNISOLONE SODIUM SUCCINATE. [Suspect]
     Active Substance: METHYLPREDNISOLONE SODIUM SUCCINATE
     Indication: RHEUMATOID ARTHRITIS
     Route: 014
  80. AZATHIOPRINE. [Suspect]
     Active Substance: AZATHIOPRINE
     Indication: RHEUMATOID ARTHRITIS
     Route: 048
  81. NAPROXEN. [Suspect]
     Active Substance: NAPROXEN
     Indication: PRODUCT USED FOR UNKNOWN INDICATION
     Route: 048
     Dates: start: 2011
  82. RANITIDINE. [Suspect]
     Active Substance: RANITIDINE
     Indication: PRODUCT USED FOR UNKNOWN INDICATION
     Route: 048
  83. RANITIDINE. [Suspect]
     Active Substance: RANITIDINE
     Route: 065
  84. TOFACITINIB [Suspect]
     Active Substance: TOFACITINIB
     Indication: RHEUMATOID ARTHRITIS
     Route: 048
  85. APO-PREDNISONE [Suspect]
     Active Substance: PREDNISONE
     Indication: RHEUMATOID ARTHRITIS
     Route: 065
  86. APO-AMITRIPTYLINE [Suspect]
     Active Substance: AMITRIPTYLINE HYDROCHLORIDE
     Indication: PRODUCT USED FOR UNKNOWN INDICATION
     Route: 048
  87. ESOMEPRAZOLE MAGNESIUM. [Suspect]
     Active Substance: ESOMEPRAZOLE MAGNESIUM
     Indication: PRODUCT USED FOR UNKNOWN INDICATION
     Route: 065
  88. ESOMEPRAZOLE MAGNESIUM TRIHYDRATE [Suspect]
     Active Substance: ESOMEPRAZOLE MAGNESIUM
     Indication: PRODUCT USED FOR UNKNOWN INDICATION
     Route: 065
  89. TRIMETHOPRIM. [Suspect]
     Active Substance: TRIMETHOPRIM
     Indication: PRODUCT USED FOR UNKNOWN INDICATION
     Route: 065
  90. PLAQUENIL [Concomitant]
     Active Substance: HYDROXYCHLOROQUINE SULFATE
     Route: 065
  91. CELECOXIB. [Concomitant]
     Active Substance: CELECOXIB
     Route: 065

REACTIONS (53)
  - Arthralgia [Unknown]
  - Bursitis [Unknown]
  - Cushingoid [Unknown]
  - Eye irritation [Unknown]
  - Rash [Unknown]
  - Rheumatoid arthritis [Unknown]
  - Scleritis [Unknown]
  - Tenderness [Unknown]
  - Haemoglobin decreased [Unknown]
  - Conjunctivitis [Unknown]
  - Pain in extremity [Unknown]
  - Photophobia [Unknown]
  - Synovial cyst [Unknown]
  - Thrombosis [Unknown]
  - Ulcer [Unknown]
  - Drug ineffective [Unknown]
  - Contraindicated product administered [Unknown]
  - Atelectasis [Unknown]
  - Crepitations [Unknown]
  - Musculoskeletal pain [Unknown]
  - Peripheral swelling [Unknown]
  - Therapeutic product effect decreased [Unknown]
  - Antinuclear antibody positive [Unknown]
  - Dry eye [Unknown]
  - Dyspnoea [Unknown]
  - Eye pain [Unknown]
  - Rheumatoid nodule [Unknown]
  - Erythema [Unknown]
  - Feeling jittery [Unknown]
  - Impaired work ability [Unknown]
  - Joint effusion [Unknown]
  - Neoplasm malignant [Unknown]
  - Nodule [Unknown]
  - Ocular hyperaemia [Unknown]
  - Swelling face [Unknown]
  - Flank pain [Unknown]
  - Infection [Unknown]
  - Interstitial lung disease [Unknown]
  - Musculoskeletal stiffness [Unknown]
  - Pleuritic pain [Unknown]
  - Pneumonia [Unknown]
  - Pruritus [Unknown]
  - Wheezing [Unknown]
  - Abdominal pain [Unknown]
  - Joint swelling [Unknown]
  - Malaise [Unknown]
  - Visual impairment [Unknown]
  - Dry mouth [Unknown]
  - Fibromyalgia [Unknown]
  - Lung disorder [Unknown]
  - Nausea [Unknown]
  - Tenosynovitis stenosans [Unknown]
  - Red blood cell count decreased [Unknown]
